FAERS Safety Report 6077944-0 (Version None)
Quarter: 2009Q1

REPORT INFORMATION
  Report Type: 
  Country: None (occurrence: None)
  Receive Date: 20090213
  Receipt Date: 20090202
  Transmission Date: 20090719
  Serious: Yes (Other)
  Sender: FDA-Public Use
  Company Number: US-WYE-H08032509

PATIENT
  Sex: Female
  Weight: 56.75 kg

DRUGS (1)
  1. PRISTIQ [Suspect]
     Indication: DEPRESSION
     Route: 048
     Dates: start: 20081101, end: 20090131

REACTIONS (4)
  - AMNESIA [None]
  - CONDITION AGGRAVATED [None]
  - FALL [None]
  - MULTIPLE SCLEROSIS [None]
